FAERS Safety Report 9127447 (Version 1)
Quarter: 2013Q1

REPORT INFORMATION
  Report Type: Spontaneous
  Country: US (occurrence: US)
  Receive Date: 20130228
  Receipt Date: 20130228
  Transmission Date: 20140127
  Serious: No
  Sender: FDA-Public Use
  Company Number: US-GLAXOSMITHKLINE-A0976815A

PATIENT
  Age: 36 Year
  Sex: Female

DRUGS (3)
  1. LAMOTRIGINE [Suspect]
     Indication: BIPOLAR DISORDER
     Dosage: 400MG AT NIGHT
     Route: 048
     Dates: start: 20100804
  2. SEROQUEL [Concomitant]
  3. BUPROPION [Concomitant]

REACTIONS (1)
  - Exposure during pregnancy [Unknown]
